FAERS Safety Report 23804111 (Version 1)
Quarter: 2024Q2

REPORT INFORMATION
  Report Type: Spontaneous
  Country: US (occurrence: None)
  Receive Date: 20240501
  Receipt Date: 20240501
  Transmission Date: 20240715
  Serious: No
  Sender: FDA-Public Use
  Company Number: 2024A100852

PATIENT
  Sex: Female

DRUGS (2)
  1. SYMBICORT [Suspect]
     Active Substance: BUDESONIDE\FORMOTEROL FUMARATE DIHYDRATE
     Dosage: 160 UG, 2 PUFFS TWICE DAILY.
     Route: 055
  2. ALBUTEROL [Concomitant]
     Active Substance: ALBUTEROL

REACTIONS (4)
  - Cough [Unknown]
  - Wrong technique in device usage process [Unknown]
  - Incorrect dose administered by device [Unknown]
  - Device defective [Unknown]
